FAERS Safety Report 11313101 (Version 1)
Quarter: 2015Q3

REPORT INFORMATION
  Report Type: Spontaneous
  Country: US (occurrence: US)
  Receive Date: 20150727
  Receipt Date: 20150727
  Transmission Date: 20151125
  Serious: No
  Sender: FDA-Public Use
  Company Number: US-ABBVIE-14P-163-1297498-00

PATIENT
  Sex: Female

DRUGS (6)
  1. PINK DRINK [Concomitant]
     Indication: PRODUCT USED FOR UNKNOWN INDICATION
     Dosage: RIGHT BEFORE LUNCH
  2. BIOCLEANSE [Concomitant]
     Indication: PRODUCT USED FOR UNKNOWN INDICATION
  3. ACCELERATOR [Concomitant]
     Indication: PRODUCT USED FOR UNKNOWN INDICATION
  4. PROBIO5 [Concomitant]
     Indication: PRODUCT USED FOR UNKNOWN INDICATION
  5. XFAXCTOR [Concomitant]
     Indication: PRODUCT USED FOR UNKNOWN INDICATION
  6. SYNTHROID [Suspect]
     Active Substance: LEVOTHYROXINE SODIUM
     Indication: PRODUCT USED FOR UNKNOWN INDICATION
     Route: 065

REACTIONS (4)
  - Lacrimation increased [Unknown]
  - Ocular discomfort [Unknown]
  - Pain [Unknown]
  - Weight decreased [Unknown]
